FAERS Safety Report 7096974-3 (Version None)
Quarter: 2010Q4

REPORT INFORMATION
  Report Type: 
  Country: None (occurrence: None)
  Receive Date: 20101111
  Receipt Date: 20101104
  Transmission Date: 20110411
  Serious: Yes (Other)
  Sender: FDA-Public Use
  Company Number: LV-B.I. PHARMACEUTICALS,INC./RIDGEFIELD-2010-AP-00587AP

PATIENT
  Age: 32 Year
  Sex: Male
  Weight: 89 kg

DRUGS (6)
  1. PRADAXA [Suspect]
     Indication: ANTICOAGULANT THERAPY
     Dosage: 220 MG
     Route: 048
     Dates: start: 20101003, end: 20101003
  2. OXAZEPAMUM [Concomitant]
     Dosage: 10 MG
     Dates: start: 20100928, end: 20100929
  3. DORMICUM (MIDAZOLAMUM) [Concomitant]
     Dosage: 7.5 MG
     Dates: start: 20100929, end: 20100929
  4. CEFAZOLINUM [Concomitant]
     Dosage: 3 G
     Route: 042
     Dates: start: 20100929, end: 20100930
  5. FRAXIPARINE (NADROPARINUM CALCICUM) [Concomitant]
     Indication: ANTICOAGULANT THERAPY
     Route: 058
     Dates: start: 20100930, end: 20101002
  6. DOLTARD (MORPHINI SULFAS) [Concomitant]
     Dosage: 30 MG
     Dates: start: 20100929, end: 20100929

REACTIONS (2)
  - LOSS OF CONSCIOUSNESS [None]
  - PRURITUS [None]
